FAERS Safety Report 5204989-2 (Version None)
Quarter: 2007Q1

REPORT INFORMATION
  Report Type: 
  Country: None (occurrence: None)
  Receive Date: 20070105
  Receipt Date: 20061221
  Transmission Date: 20070707
  Serious: Yes (Hospitalization)
  Sender: FDA-Public Use
  Company Number: GXKR2006TR08450

PATIENT
  Age: 56 Year
  Sex: Female

DRUGS (2)
  1. FLUVASTATIN [Suspect]
     Dosage: 80 MG/DAY
  2. GEMFIBROZIL [Suspect]
     Dosage: 1200 MG/DAY

REACTIONS (15)
  - AGITATION [None]
  - ALANINE AMINOTRANSFERASE INCREASED [None]
  - ASPARTATE AMINOTRANSFERASE INCREASED [None]
  - BLOOD LACTATE DEHYDROGENASE INCREASED [None]
  - CHROMATURIA [None]
  - DRUG INTERACTION [None]
  - FATIGUE [None]
  - HEPATIC ENZYME INCREASED [None]
  - LIVER INJURY [None]
  - MALAISE [None]
  - METABOLIC ACIDOSIS [None]
  - MOTOR DYSFUNCTION [None]
  - ORAL INTAKE REDUCED [None]
  - RENAL FAILURE ACUTE [None]
  - RHABDOMYOLYSIS [None]
